FAERS Safety Report 22203956 (Version 2)
Quarter: 2023Q4

REPORT INFORMATION
  Report Type: Spontaneous
  Country: ES (occurrence: ES)
  Receive Date: 20230412
  Receipt Date: 20231130
  Transmission Date: 20240109
  Serious: Yes (Hospitalization, Other)
  Sender: FDA-Public Use
  Company Number: ES-BEIGENE AUS PTY LTD-BGN-2023-001303

PATIENT
  Age: 75 Year
  Sex: Male
  Weight: 74 kg

DRUGS (15)
  1. AZACITIDINE [Suspect]
     Active Substance: AZACITIDINE
     Indication: Myelodysplastic syndrome
     Dosage: 44 MILLIGRAM, QD
     Route: 042
     Dates: start: 20221123, end: 20221123
  2. AZACITIDINE [Suspect]
     Active Substance: AZACITIDINE
     Dosage: 132 MILLIGRAM, QD
     Route: 042
     Dates: start: 20220616
  3. AZACITIDINE [Suspect]
     Active Substance: AZACITIDINE
     Dosage: 44 MILLIGRAM, QD
     Route: 042
     Dates: end: 20230207
  4. AZACITIDINE [Suspect]
     Active Substance: AZACITIDINE
     Dosage: 88 MILLIGRAM, QD
     Route: 042
     Dates: start: 20230207, end: 20230207
  5. BGB-11417 [Suspect]
     Active Substance: BGB-11417
     Indication: Myelodysplastic syndrome
     Dosage: 20 MILLIGRAM, QD
     Route: 048
     Dates: start: 20221115, end: 20221124
  6. BGB-11417 [Suspect]
     Active Substance: BGB-11417
     Dosage: 10 MILLIGRAM, QD
     Route: 048
     Dates: start: 20220616
  7. BGB-11417 [Suspect]
     Active Substance: BGB-11417
     Dosage: 20 MILLIGRAM, QD
     Route: 048
     Dates: end: 20230208
  8. BGB-11417 [Suspect]
     Active Substance: BGB-11417
     Dosage: UNK
     Route: 048
     Dates: end: 20230208
  9. OMEPRAZOLE [Concomitant]
     Active Substance: OMEPRAZOLE
     Indication: Prophylaxis
     Dosage: UNK
     Route: 048
     Dates: start: 20220822
  10. POTASSIUM CHLORIDE [Concomitant]
     Active Substance: POTASSIUM CHLORIDE
     Indication: Prophylaxis
     Dosage: UNK
     Route: 048
     Dates: start: 20220907
  11. CEFUROXIME [Concomitant]
     Active Substance: CEFUROXIME
     Indication: Antibiotic prophylaxis
     Dosage: UNK
     Route: 048
     Dates: start: 20220926
  12. FUROSEMIDE [Concomitant]
     Active Substance: FUROSEMIDE
     Indication: Hypertension
     Dosage: UNK
     Route: 048
     Dates: start: 20220829
  13. SPIRONOLACTONE [Concomitant]
     Active Substance: SPIRONOLACTONE
     Indication: Prophylaxis
     Dosage: UNK
     Route: 048
     Dates: start: 20220829
  14. ISAVUCONAZOLE [Concomitant]
     Active Substance: ISAVUCONAZOLE
     Indication: Antifungal prophylaxis
     Dosage: UNK
     Route: 048
     Dates: start: 20220919
  15. LORAZEPAM [Concomitant]
     Active Substance: LORAZEPAM
     Indication: Prophylaxis
     Dosage: UNK
     Route: 048
     Dates: start: 20220820

REACTIONS (2)
  - Febrile neutropenia [Not Recovered/Not Resolved]
  - Off label use [Unknown]

NARRATIVE: CASE EVENT DATE: 20230221
